FAERS Safety Report 4912132-X (Version None)
Quarter: 2006Q1

REPORT INFORMATION
  Report Type: 
  Country: None (occurrence: None)
  Receive Date: 20060215
  Receipt Date: 20050725
  Transmission Date: 20060701
  Serious: No
  Sender: FDA-Public Use
  Company Number: US-GLAXOSMITHKLINE-A0567562A

PATIENT
  Age: 32 Year
  Sex: Female

DRUGS (2)
  1. VALACYCLOVIR HCL [Suspect]
     Dosage: 1G TWICE PER DAY
     Route: 048
     Dates: start: 20050724
  2. CEPHALEXIN [Concomitant]

REACTIONS (2)
  - NAUSEA [None]
  - VOMITING [None]
